FAERS Safety Report 11575105 (Version 1)
Quarter: 2015Q3

REPORT INFORMATION
  Report Type: Report from Study
  Country: US (occurrence: US)
  Receive Date: 20150930
  Receipt Date: 20150930
  Transmission Date: 20151125
  Serious: Yes (Other)
  Sender: FDA-Public Use
  Company Number: US-AMGEN-USASL2015098397

PATIENT
  Sex: Female

DRUGS (1)
  1. ENBREL [Suspect]
     Active Substance: ETANERCEPT
     Indication: RHEUMATOID ARTHRITIS
     Dosage: UNK
     Route: 065

REACTIONS (9)
  - Throat tightness [Unknown]
  - Seasonal allergy [Unknown]
  - Drug effect incomplete [Unknown]
  - Dysphagia [Unknown]
  - Diabetes mellitus [Unknown]
  - Mycotic allergy [Unknown]
  - Furuncle [Unknown]
  - Dysgeusia [Unknown]
  - Drug dose omission [Unknown]
